FAERS Safety Report 5031463-9 (Version None)
Quarter: 2006Q2

REPORT INFORMATION
  Report Type: 
  Country: None (occurrence: None)
  Receive Date: 20060621
  Receipt Date: 20060609
  Transmission Date: 20061013
  Serious: Yes (Hospitalization)
  Sender: FDA-Public Use
  Company Number: US-BRISTOL-MYERS SQUIBB COMPANY-13407416

PATIENT
  Age: 53 Year
  Sex: Male

DRUGS (21)
  1. ORENCIA [Suspect]
     Indication: RHEUMATOID ARTHRITIS
     Route: 042
     Dates: start: 20051021
  2. TRILEPTAL [Suspect]
     Dates: start: 20040122
  3. METHOTREXATE [Concomitant]
     Route: 048
     Dates: start: 20050615
  4. FOLIC ACID [Concomitant]
     Dates: start: 20050615
  5. PREDNISONE [Concomitant]
     Indication: RHEUMATOID ARTHRITIS
     Route: 048
     Dates: start: 20050801
  6. MIRTAZAPINE [Concomitant]
     Dates: start: 20040122
  7. SOMA [Concomitant]
     Dates: start: 20030729
  8. CARDIZEM CD [Concomitant]
     Dates: start: 19940630
  9. DOXAZOSIN [Concomitant]
     Dates: start: 19940630
  10. TOCOPHEROL ACETATE [Concomitant]
     Dates: start: 19940630
  11. CALCIUM + VITAMIN D [Concomitant]
     Dosage: DOSAGE FORM= 1000/400 MG/IU
     Dates: start: 20000615
  12. ASPIRIN [Concomitant]
     Dates: start: 19940630
  13. OXYCODONE HCL [Concomitant]
     Dates: start: 20050204
  14. NITROGLYCERIN [Concomitant]
     Dates: start: 19940101
  15. LIPITOR [Concomitant]
     Dates: start: 20040728
  16. LORAZEPAM [Concomitant]
     Dates: start: 20041015
  17. TARKA [Concomitant]
     Dosage: DOSAGE FORM= 4MG/240 MG
     Dates: start: 20051128
  18. IBUPROFEN [Concomitant]
     Dates: start: 20051201
  19. MILK THISTLE [Concomitant]
     Dates: start: 20050615
  20. KEPPRA [Concomitant]
     Dates: start: 20060417
  21. VENLAFAXINE HCL [Concomitant]
     Dates: start: 20030902

REACTIONS (4)
  - DIPLOPIA [None]
  - HYPONATRAEMIA [None]
  - INAPPROPRIATE ANTIDIURETIC HORMONE SECRETION [None]
  - SOMNOLENCE [None]
